FAERS Safety Report 9519737 (Version 1)
Quarter: 2013Q3

REPORT INFORMATION
  Report Type: Spontaneous
  Country: GB (occurrence: GB)
  Receive Date: 20130912
  Receipt Date: 20130912
  Transmission Date: 20140515
  Serious: Yes (Other)
  Sender: FDA-Public Use
  Company Number: GB-ACTAVISPR-2013-15787

PATIENT
  Age: 41 Year
  Sex: Male

DRUGS (5)
  1. CITALOPRAM (UNKNOWN) [Suspect]
     Indication: DEPRESSION
     Dosage: UNK
     Route: 065
  2. FLUOXETINE [Concomitant]
     Indication: DEPRESSION
     Dosage: UNK
     Route: 065
  3. LITHIUM [Concomitant]
     Indication: BIPOLAR DISORDER
     Dosage: UNK
     Route: 065
  4. SODIUM VALPROATE [Concomitant]
     Indication: BIPOLAR DISORDER
     Dosage: UNK
     Route: 065
  5. QUETIAPINE [Concomitant]
     Indication: BIPOLAR DISORDER
     Dosage: UNK
     Route: 065

REACTIONS (1)
  - Bipolar disorder [Not Recovered/Not Resolved]
